FAERS Safety Report 17049917 (Version 1)
Quarter: 2019Q4

REPORT INFORMATION
  Report Type: Spontaneous
  Country: DE (occurrence: DE)
  Receive Date: 20191119
  Receipt Date: 20191119
  Transmission Date: 20200122
  Serious: Yes (Other)
  Sender: FDA-Public Use
  Company Number: DE-BAUSCH-BL-2019-061461

PATIENT
  Age: 33 Year
  Sex: Female
  Weight: 68 kg

DRUGS (6)
  1. FRAGMIN [Concomitant]
     Active Substance: DALTEPARIN SODIUM
     Indication: PROPHYLAXIS OF ABORTION
     Route: 058
     Dates: start: 20180703, end: 20190305
  2. THYROXIN [Concomitant]
     Active Substance: LEVOTHYROXINE
     Indication: HYPOTHYROIDISM
     Route: 048
     Dates: start: 20180703, end: 20190305
  3. FOLSAEURE [Concomitant]
     Active Substance: FOLIC ACID
     Indication: PROPHYLAXIS OF NEURAL TUBE DEFECT
     Route: 048
  4. VENLAFAXINE [Suspect]
     Active Substance: VENLAFAXINE HYDROCHLORIDE
     Indication: BIPOLAR DISORDER
     Route: 048
     Dates: start: 20180703, end: 20190323
  5. QUILONUM RETARD [Suspect]
     Active Substance: LITHIUM CARBONATE
     Indication: BIPOLAR DISORDER
     Dosage: (675- 0- 675) 2 SEPARATED DOSES
     Route: 048
     Dates: start: 20180703, end: 20190323
  6. INSULIN BASAL [Concomitant]
     Active Substance: INSULIN NOS
     Indication: GESTATIONAL DIABETES
     Dosage: 14 (I.E./D (5-3-6))
     Route: 058

REACTIONS (2)
  - Maternal exposure during pregnancy [Unknown]
  - Gestational diabetes [Recovered/Resolved]
